FAERS Safety Report 5322024-2 (Version None)
Quarter: 2007Q2

REPORT INFORMATION
  Report Type: 
  Country: None (occurrence: None)
  Receive Date: 20070503
  Receipt Date: 20070419
  Transmission Date: 20071010
  Serious: Yes (Life-Threatening, Hospitalization)
  Sender: FDA-Public Use
  Company Number: 106232

PATIENT
  Age: 47 Year
  Sex: Male

DRUGS (3)
  1. DAIVONEX (CALCIPOTRIOL) [Suspect]
     Indication: PSORIASIS
     Dates: start: 20070101
  2. CYCLOSPORINE [Suspect]
     Indication: PSORIASIS
     Dosage: 100 TO 200 MG PR DAY
  3. MAGNESIUM (MAGNESIUM) [Concomitant]

REACTIONS (3)
  - HYPERCALCAEMIA [None]
  - INCORRECT DOSE ADMINISTERED [None]
  - RENAL FAILURE [None]
